FAERS Safety Report 9940948 (Version 1)
Quarter: 2014Q1

REPORT INFORMATION
  Report Type: Spontaneous
  Country: US (occurrence: US)
  Receive Date: 20140303
  Receipt Date: 20140303
  Transmission Date: 20141002
  Serious: Yes (Other)
  Sender: FDA-Public Use
  Company Number: US-PFIZER INC-2014058043

PATIENT
  Sex: Female

DRUGS (5)
  1. LYRICA [Suspect]
     Indication: BIPOLAR II DISORDER
     Dosage: 50 MG, UNK
     Dates: start: 20130628, end: 20130813
  2. LYRICA [Suspect]
     Indication: PELVIC PAIN
  3. TRILEPTAL [Suspect]
     Indication: BIPOLAR II DISORDER
     Dosage: 150 MG, UNK
  4. TRILEPTAL [Suspect]
     Indication: PELVIC PAIN
  5. ABILIFY [Suspect]
     Indication: BIPOLAR II DISORDER
     Dosage: 5 MG, UNK
     Dates: start: 20130628, end: 20130814

REACTIONS (2)
  - Off label use [Unknown]
  - Abortion spontaneous [Unknown]
